FAERS Safety Report 11835682 (Version 2)
Quarter: 2015Q4

REPORT INFORMATION
  Report Type: Spontaneous
  Country: US (occurrence: US)
  Receive Date: 20151215
  Receipt Date: 20151223
  Transmission Date: 20160305
  Serious: No
  Sender: FDA-Public Use
  Company Number: US-009507513-1512USA007759

PATIENT
  Age: 19 Year
  Sex: Female
  Weight: 63.49 kg

DRUGS (1)
  1. NEXPLANON [Suspect]
     Active Substance: ETONOGESTREL
     Indication: CONTRACEPTION
     Dosage: UNK, FREQUENCY: EVERY 3 YEARS
     Route: 059
     Dates: start: 20150513

REACTIONS (2)
  - Device kink [Not Recovered/Not Resolved]
  - Implant site pruritus [Unknown]

NARRATIVE: CASE EVENT DATE: 20151130
